FAERS Safety Report 8314068-3 (Version None)
Quarter: 2012Q2

REPORT INFORMATION
  Report Type: 
  Country: None (occurrence: None)
  Receive Date: 20120426
  Receipt Date: 20120412
  Transmission Date: 20120825
  Serious: Yes (Other)
  Sender: FDA-Public Use
  Company Number: US-RANBAXY-2012RR-55841

PATIENT
  Sex: Female

DRUGS (8)
  1. REBIF [Suspect]
     Dosage: 3.7714 MCG (8.8 UG, 3 IN 1WK)
     Route: 058
     Dates: start: 20120315
  2. METFORMIN HCL [Concomitant]
     Indication: PRODUCT USED FOR UNKNOWN INDICATION
     Route: 065
  3. GABAPENTIN [Suspect]
     Indication: PRODUCT USED FOR UNKNOWN INDICATION
     Dosage: UNK
     Route: 065
     Dates: start: 20120201
  4. LYRICA [Concomitant]
     Indication: PRODUCT USED FOR UNKNOWN INDICATION
     Route: 065
  5. BACLOFEN [Concomitant]
     Indication: PRODUCT USED FOR UNKNOWN INDICATION
     Route: 065
  6. LEVOTHIROXYNE [Concomitant]
     Indication: HYPOTHYROIDISM
     Dosage: UNK
     Route: 065
     Dates: start: 20100101
  7. REBIF [Suspect]
     Indication: MULTIPLE SCLEROSIS
     Dosage: 8.8 UG, 3 IN 1WK
     Route: 058
     Dates: start: 20120306
  8. PERINDOPRIL [Concomitant]
     Indication: HYPERTENSION
     Dosage: UNK
     Route: 065

REACTIONS (12)
  - BLOOD PRESSURE ABNORMAL [None]
  - DIZZINESS [None]
  - PYREXIA [None]
  - SOMNOLENCE [None]
  - RESTLESSNESS [None]
  - CHILLS [None]
  - HEART RATE DECREASED [None]
  - FEELING OF BODY TEMPERATURE CHANGE [None]
  - INJECTION SITE PAIN [None]
  - INJECTION SITE URTICARIA [None]
  - INJECTION SITE HAEMATOMA [None]
  - FATIGUE [None]
